FAERS Safety Report 5084969-0 (Version None)
Quarter: 2006Q3

REPORT INFORMATION
  Report Type: 
  Country: None (occurrence: None)
  Receive Date: 20060821
  Receipt Date: 20040303
  Transmission Date: 20061208
  Serious: Yes (Hospitalization)
  Sender: FDA-Public Use
  Company Number: JP-ABBOTT-04P-087-0252385-00

PATIENT
  Sex: Male

DRUGS (33)
  1. KALETRA [Suspect]
     Indication: HIV INFECTION
     Route: 048
     Dates: start: 20020613, end: 20030321
  2. KALETRA [Suspect]
     Route: 048
     Dates: start: 20030510, end: 20050907
  3. NORVIR [Suspect]
     Indication: HIV INFECTION
     Route: 048
     Dates: start: 20050908
  4. ZIDOVUDINE [Suspect]
     Indication: HIV INFECTION
     Route: 048
     Dates: start: 20020401, end: 20030321
  5. ZIDOVUDINE [Suspect]
     Route: 048
     Dates: start: 20030510
  6. DIDANOSINE [Suspect]
     Indication: HIV INFECTION
     Route: 048
     Dates: start: 20020613, end: 20030321
  7. DIDANOSINE [Suspect]
     Route: 048
     Dates: start: 20030510
  8. LAMIVUDINE [Suspect]
     Indication: HIV INFECTION
     Route: 048
     Dates: start: 20020401, end: 20020612
  9. NELFINAVIR [Suspect]
     Indication: HIV INFECTION
     Route: 048
     Dates: start: 20020401, end: 20020612
  10. ATAZANAVIR [Concomitant]
     Indication: HIV INFECTION
     Route: 048
     Dates: start: 20050908
  11. LOPERAMIDE HYDROCHLORIDE [Concomitant]
     Indication: DIARRHOEA
     Route: 048
     Dates: start: 20020401, end: 20060118
  12. LOPERAMIDE HYDROCHLORIDE [Concomitant]
     Dates: start: 20030522
  13. FAMOTIDINE [Concomitant]
     Indication: GASTRITIS
     Route: 048
     Dates: start: 20020401, end: 20050713
  14. FAMOTIDINE [Concomitant]
     Dates: start: 20030522
  15. TANDOSPIRONE CITRATE [Concomitant]
     Indication: NEUROSIS
     Route: 048
     Dates: start: 20020401
  16. TANDOSPIRONE CITRATE [Concomitant]
     Dates: start: 20030619, end: 20030714
  17. MOFEZOLAC [Concomitant]
     Indication: CERVICOBRACHIAL SYNDROME
     Route: 048
     Dates: start: 20020401
  18. MOFEZOLAC [Concomitant]
     Route: 048
     Dates: start: 20030619
  19. VITAMINS [Concomitant]
     Indication: MALAISE
     Route: 048
     Dates: start: 20020401, end: 20020418
  20. ZOLPIDEM TARTRATE [Concomitant]
     Indication: INSOMNIA
     Route: 048
     Dates: start: 20020401, end: 20020418
  21. FEXOFENADINE HYDROCHLORIDE [Concomitant]
     Indication: SEASONAL ALLERGY
     Route: 048
     Dates: start: 20020401, end: 20020418
  22. NITRAZEPAM [Concomitant]
     Indication: INSOMNIA
     Route: 048
     Dates: start: 20020418, end: 20020605
  23. SODIUM CROMOGLICATE [Concomitant]
     Indication: SEASONAL ALLERGY
     Route: 061
     Dates: start: 20020401, end: 20020418
  24. BROTIZOLAM [Concomitant]
     Indication: INSOMNIA
     Route: 048
     Dates: start: 20020606
  25. BROTIZOLAM [Concomitant]
     Dates: start: 20030522
  26. CANDESARTAN CILEXETIL [Concomitant]
     Indication: HYPERTENSION
     Route: 048
     Dates: start: 20030619, end: 20030719
  27. LOSARTAN POTASSIUM [Concomitant]
     Indication: HYPERTENSION
     Route: 048
     Dates: start: 20030731, end: 20060118
  28. MOFEZOLAC [Concomitant]
     Route: 048
     Dates: start: 20030619
  29. TOCOPHERYL NICOTINATE [Concomitant]
     Indication: CERVICOBRACHIAL SYNDROME
     Route: 048
     Dates: start: 20030619, end: 20050413
  30. BENZBROMARONE [Concomitant]
     Indication: HYPERURICAEMIA
     Route: 048
     Dates: start: 20030918
  31. AMLODIPINE BESYLATE [Concomitant]
     Indication: HYPERTENSION
     Route: 048
     Dates: start: 20050210
  32. KETOTIFEN FUMARATE [Concomitant]
     Indication: SEASONAL ALLERGY
     Route: 048
     Dates: start: 20050414, end: 20050713
  33. AMITRIPTYLINE HYDROCHLORIDE [Concomitant]
     Indication: INSOMNIA
     Route: 048
     Dates: start: 20060119

REACTIONS (2)
  - EPILEPSY [None]
  - HYPERLIPIDAEMIA [None]
